FAERS Safety Report 8523804-2 (Version None)
Quarter: 2012Q3

REPORT INFORMATION
  Report Type: 
  Country: None (occurrence: None)
  Receive Date: 20120720
  Receipt Date: 20120710
  Transmission Date: 20120928
  Serious: Yes (Other)
  Sender: FDA-Public Use
  Company Number: BR-JNJFOC-20120707277

PATIENT
  Sex: Male
  Weight: 76 kg

DRUGS (3)
  1. TYLENOL [Suspect]
     Route: 048
  2. NUTRIDRINK [Suspect]
     Indication: PRODUCT USED FOR UNKNOWN INDICATION
     Route: 048
     Dates: start: 20120710
  3. TYLENOL [Suspect]
     Indication: HEADACHE
     Route: 048
     Dates: start: 20120710

REACTIONS (1)
  - PRIAPISM [None]
